FAERS Safety Report 5904420-5 (Version None)
Quarter: 2008Q4

REPORT INFORMATION
  Report Type: 
  Country: None (occurrence: None)
  Receive Date: 20081001
  Receipt Date: 20080808
  Transmission Date: 20090506
  Serious: Yes (Other)
  Sender: FDA-Public Use
  Company Number: PHHY2008GB17797

PATIENT
  Age: 64 Year
  Sex: Female

DRUGS (8)
  1. ACLASTA [Suspect]
     Indication: OSTEOPOROSIS
     Dosage: 5 MG, UNK
     Route: 042
     Dates: start: 20080218
  2. PAMIDRONATE DISODIUM [Suspect]
     Dosage: UNK
     Dates: start: 20040101
  3. CLOPIDROGEL HYDROGEN SULPHATE [Concomitant]
     Dosage: UNK
  4. DILTIAZEM HCL [Concomitant]
     Dosage: UNK
  5. ISOSORBIDE MONONITRATE [Concomitant]
     Dosage: UNK
  6. LEFLUNOMIDE [Concomitant]
     Dosage: UNK
  7. OMEPRAZOLE [Concomitant]
     Dosage: UNK
  8. SIMVASTATIN [Concomitant]
     Dosage: UNK

REACTIONS (5)
  - BONE DEBRIDEMENT [None]
  - OSTEONECROSIS [None]
  - PAIN IN JAW [None]
  - SWELLING [None]
  - TOOTH EXTRACTION [None]
